FAERS Safety Report 6056928-2 (Version None)
Quarter: 2009Q1

REPORT INFORMATION
  Report Type: 
  Country: None (occurrence: None)
  Receive Date: 20090129
  Receipt Date: 20090123
  Transmission Date: 20090719
  Serious: Yes (Hospitalization)
  Sender: FDA-Public Use
  Company Number: US-B.I. PHARMACEUTICALS,INC./RIDGEFIELD-2009-BP-00915BP

PATIENT
  Sex: Female

DRUGS (6)
  1. SPIRIVA [Suspect]
     Indication: EMPHYSEMA
     Dosage: 18MCG
     Route: 055
  2. SPIRIVA [Suspect]
     Indication: BRONCHITIS CHRONIC
  3. ADVAIR DISKUS 100/50 [Concomitant]
     Indication: EMPHYSEMA
  4. QUINAPRIL [Concomitant]
     Indication: HYPERTENSION
  5. ACCURETIC [Concomitant]
     Indication: EMPHYSEMA
  6. PREMPRO [Concomitant]
     Indication: MENOPAUSE

REACTIONS (4)
  - ADMINISTRATION SITE REACTION [None]
  - BRONCHITIS [None]
  - DYSPNOEA [None]
  - HYPERTENSION [None]
